FAERS Safety Report 9694036 (Version 1)
Quarter: 2013Q4

REPORT INFORMATION
  Report Type: Spontaneous
  Country: US (occurrence: US)
  Receive Date: 20131118
  Receipt Date: 20131118
  Transmission Date: 20140711
  Serious: No
  Sender: FDA-Public Use
  Company Number: US-TEVA-443443USA

PATIENT
  Age: 75 Year
  Sex: Male

DRUGS (1)
  1. PROAIR HFA [Suspect]

REACTIONS (3)
  - Wheezing [Unknown]
  - Drug effect decreased [Unknown]
  - Device malfunction [Unknown]
